FAERS Safety Report 11434163 (Version 1)
Quarter: 2015Q3

REPORT INFORMATION
  Report Type: Spontaneous
  Country: US (occurrence: None)
  Receive Date: 20150828
  Receipt Date: 20150828
  Transmission Date: 20151125
  Serious: Yes (Hospitalization, Disabling)
  Sender: FDA-Public Use
  Company Number: None

PATIENT
  Age: 61 Year
  Sex: Female
  Weight: 71.67 kg

DRUGS (2)
  1. CRESTOR [Concomitant]
     Active Substance: ROSUVASTATIN CALCIUM
  2. CHANTIX [Suspect]
     Active Substance: VARENICLINE TARTRATE
     Indication: SMOKING CESSATION THERAPY
     Dosage: 0.5 MG 1-3 DAYS 2X 0.5 4-7?2X 1MG 2-12 WKS ?1-2 TIMES DAILY MORN. + EVE.?MOUTH
     Route: 048
     Dates: start: 20140406, end: 20140415

REACTIONS (4)
  - Mental disorder [None]
  - Dementia [None]
  - Hallucination [None]
  - Vertigo [None]

NARRATIVE: CASE EVENT DATE: 20140415
